FAERS Safety Report 18260966 (Version 2)
Quarter: 2020Q3

REPORT INFORMATION
  Report Type: Spontaneous
  Country: US (occurrence: US)
  Receive Date: 20200914
  Receipt Date: 20200929
  Transmission Date: 20201103
  Serious: Yes (Hospitalization)
  Sender: FDA-Public Use
  Company Number: US-ROCHE-2676088

PATIENT
  Sex: Female

DRUGS (12)
  1. SUCRALFATE. [Concomitant]
     Active Substance: SUCRALFATE
  2. XOLAIR [Suspect]
     Active Substance: OMALIZUMAB
     Indication: ASTHMA
     Dosage: XOLAIR 150 MG
     Route: 058
     Dates: start: 20170201
  3. XANAX [Concomitant]
     Active Substance: ALPRAZOLAM
  4. BREO ELLIPTA [Concomitant]
     Active Substance: FLUTICASONE FUROATE\VILANTEROL TRIFENATATE
  5. TRULANCE [Concomitant]
     Active Substance: PLECANATIDE
  6. MUPIROCIN. [Concomitant]
     Active Substance: MUPIROCIN
  7. BACTRIM [Concomitant]
     Active Substance: SULFAMETHOXAZOLE\TRIMETHOPRIM
  8. NORTRIPTYLINE [Concomitant]
     Active Substance: NORTRIPTYLINE
  9. BUDESONIDE. [Concomitant]
     Active Substance: BUDESONIDE
  10. CREON [Concomitant]
     Active Substance: PANCRELIPASE AMYLASE\PANCRELIPASE LIPASE\PANCRELIPASE PROTEASE
  11. ROBINUL [Concomitant]
     Active Substance: GLYCOPYRROLATE
  12. SPIRIVA [Concomitant]
     Active Substance: TIOTROPIUM BROMIDE MONOHYDRATE

REACTIONS (3)
  - Fall [Unknown]
  - Cerebrovascular accident [Unknown]
  - Illness [Unknown]
